FAERS Safety Report 21372447 (Version 4)
Quarter: 2023Q1

REPORT INFORMATION
  Report Type: Report from Study
  Country: US (occurrence: US)
  Receive Date: 20220924
  Receipt Date: 20230221
  Transmission Date: 20230417
  Serious: Yes (Hospitalization, Other)
  Sender: FDA-Public Use
  Company Number: US-002147023-NVSC2022US215681

PATIENT
  Age: 63 Year
  Sex: Female

DRUGS (1)
  1. ENTRESTO [Suspect]
     Active Substance: SACUBITRIL\VALSARTAN
     Indication: Product used for unknown indication
     Dosage: 50 MG, (24.3 MG SACUBITRIL AND 25.7 MG VALSARTAN), BID
     Route: 048
     Dates: start: 202208

REACTIONS (7)
  - Cardiac disorder [Unknown]
  - Dizziness [Unknown]
  - Abdominal discomfort [Unknown]
  - Hyperhidrosis [Unknown]
  - Paraesthesia [Unknown]
  - Ejection fraction decreased [Unknown]
  - Pruritus [Not Recovered/Not Resolved]

NARRATIVE: CASE EVENT DATE: 20220801
